FAERS Safety Report 5013163-4 (Version None)
Quarter: 2006Q2

REPORT INFORMATION
  Report Type: 
  Country: None (occurrence: None)
  Receive Date: 20060530
  Receipt Date: 20060313
  Transmission Date: 20061013
  Serious: Yes (Other)
  Sender: FDA-Public Use
  Company Number: US-GLAXOSMITHKLINE-A0597343A

PATIENT
  Age: 65 Year
  Sex: Male
  Weight: 118.2 kg

DRUGS (10)
  1. WELLBUTRIN XL [Suspect]
     Indication: DEPRESSION
     Dosage: 150MG PER DAY
     Route: 048
     Dates: start: 20060310
  2. LEXAPRO [Suspect]
     Indication: DEPRESSION
     Dosage: 10MG PER DAY
     Route: 048
     Dates: end: 20060309
  3. FLOMAX [Concomitant]
  4. GLIPIZIDE [Concomitant]
  5. METFORMIN [Concomitant]
  6. LIPITOR [Concomitant]
  7. TRICOR [Concomitant]
  8. OXAPROZIN [Concomitant]
  9. CIALIS [Concomitant]
  10. ASPIRIN [Concomitant]

REACTIONS (3)
  - IRRITABILITY [None]
  - SUICIDAL IDEATION [None]
  - TREMOR [None]
